FAERS Safety Report 10242570 (Version 2)
Quarter: 2014Q2

REPORT INFORMATION
  Report Type: Spontaneous
  Country: GB (occurrence: GB)
  Receive Date: 20140617
  Receipt Date: 20140617
  Transmission Date: 20141212
  Serious: Yes (Hospitalization)
  Sender: FDA-Public Use
  Company Number: ALCN2007GB001835

PATIENT
  Age: 76 Year
  Sex: Male

DRUGS (4)
  1. TIMOLOL [Suspect]
     Route: 047
  2. ALPHAGAN [Suspect]
     Indication: OPEN ANGLE GLAUCOMA
     Route: 047
  3. TRUSOPT [Suspect]
     Indication: OPEN ANGLE GLAUCOMA
     Route: 047
  4. XALATAN [Suspect]
     Indication: OPEN ANGLE GLAUCOMA
     Route: 047

REACTIONS (9)
  - Ectropion [Recovered/Resolved]
  - Dermatitis [Unknown]
  - Eye pain [Unknown]
  - Eye irritation [Unknown]
  - Conjunctival hyperaemia [Unknown]
  - Conjunctival oedema [Unknown]
  - Periorbital oedema [Unknown]
  - Erythema [Unknown]
  - Skin exfoliation [Unknown]
